FAERS Safety Report 24629705 (Version 1)
Quarter: 2024Q4

REPORT INFORMATION
  Report Type: Spontaneous
  Country: IT (occurrence: IT)
  Receive Date: 20241118
  Receipt Date: 20241118
  Transmission Date: 20250114
  Serious: Yes (Hospitalization, Other)
  Sender: BAXTER
  Company Number: None

PATIENT
  Age: 56 Year
  Sex: Male
  Weight: 52 kg

DRUGS (3)
  1. METRONIDAZOLE [Suspect]
     Active Substance: METRONIDAZOLE
     Indication: Osteomyelitis
     Dosage: 900 MG EVERY 8 HOURS
     Route: 041
     Dates: start: 20240919, end: 20241015
  2. DAPTOMYCIN [Concomitant]
     Active Substance: DAPTOMYCIN
     Indication: Osteomyelitis
     Dosage: 500 MG, ONCE DAILY
     Route: 041
     Dates: start: 20240919, end: 20241015
  3. CEFTAZIDIME [Concomitant]
     Active Substance: CEFTAZIDIME
     Indication: Osteomyelitis
     Dosage: 2 G EVERY 12 HOURS
     Route: 041
     Dates: start: 20240919, end: 20241015

REACTIONS (1)
  - Generalised tonic-clonic seizure [Recovered/Resolved]

NARRATIVE: CASE EVENT DATE: 20241014
